FAERS Safety Report 6731276-3 (Version None)
Quarter: 2010Q2

REPORT INFORMATION
  Report Type: 
  Country: None (occurrence: None)
  Receive Date: 20100518
  Receipt Date: 20100512
  Transmission Date: 20101027
  Serious: Yes (Hospitalization, Other)
  Sender: FDA-Public Use
  Company Number: BR-ABBOTT-09P-020-0601687-00

PATIENT
  Sex: Female
  Weight: 65 kg

DRUGS (13)
  1. HUMIRA [Suspect]
     Indication: RHEUMATOID ARTHRITIS
     Route: 058
     Dates: end: 20090801
  2. HUMIRA [Suspect]
     Route: 058
     Dates: start: 20090901
  3. METHOTREXATE [Concomitant]
     Indication: RHEUMATOID ARTHRITIS
     Route: 048
  4. ARAVA [Concomitant]
     Indication: RHEUMATOID ARTHRITIS
     Route: 048
  5. LOSARTAN/HYDROCHLOORTHIAZIDE [Concomitant]
     Indication: HYPERTENSION
     Dosage: 50MG/12.5MG
     Route: 048
  6. OMEPRAZOLE [Concomitant]
     Indication: GASTRIC DISORDER
     Route: 048
  7. METICORTEN [Concomitant]
     Indication: RHEUMATOID ARTHRITIS
     Route: 048
  8. DICLOFENAC [Concomitant]
     Indication: RHEUMATOID ARTHRITIS
     Route: 048
  9. DICLOFENAC [Concomitant]
     Indication: ANTIINFLAMMATORY THERAPY
  10. CALCIUM [Concomitant]
     Indication: OSTEOPOROSIS
     Route: 048
  11. LORAZEPAM [Concomitant]
     Indication: SLEEP DISORDER THERAPY
     Dosage: 2 MG TABLET, TAKES 1/2-TABLET DAILY
     Route: 048
  12. AMITRIPTLINE HYDROCHLORIDE TAB [Concomitant]
     Indication: ANTIDEPRESSANT THERAPY
     Dosage: 25 MG TABLET, TAKES 1/2-TABLET DAILY
     Route: 048
  13. SIMVASTIN [Concomitant]
     Indication: BLOOD CHOLESTEROL
     Route: 048

REACTIONS (8)
  - ARTHRALGIA [None]
  - BLOOD CHOLESTEROL ABNORMAL [None]
  - DRUG INEFFECTIVE [None]
  - INJECTION SITE NODULE [None]
  - PARAESTHESIA [None]
  - PATHOLOGICAL FRACTURE [None]
  - SENSATION OF HEAVINESS [None]
  - WEIGHT INCREASED [None]
